FAERS Safety Report 12602235 (Version 1)
Quarter: 2016Q3

REPORT INFORMATION
  Report Type: Spontaneous
  Country: US (occurrence: US)
  Receive Date: 20160728
  Receipt Date: 20160728
  Transmission Date: 20161109
  Serious: No
  Sender: FDA-Public Use
  Company Number: US-BAUSCH-BL-2015-022185

PATIENT
  Sex: Female

DRUGS (1)
  1. OPCON-A [Suspect]
     Active Substance: NAPHAZOLINE HYDROCHLORIDE\PHENIRAMINE MALEATE
     Indication: PRODUCT USED FOR UNKNOWN INDICATION
     Dosage: EVERY FEW HOURS
     Dates: start: 20150911, end: 20150916

REACTIONS (4)
  - Feeling hot [Unknown]
  - Swelling face [Unknown]
  - Erythema [Unknown]
  - Headache [Unknown]

NARRATIVE: CASE EVENT DATE: 20150917
